FAERS Safety Report 16699985 (Version 2)
Quarter: 2019Q3

REPORT INFORMATION
  Report Type: Report from Study
  Country: JP (occurrence: JP)
  Receive Date: 20190813
  Receipt Date: 20190920
  Transmission Date: 20191004
  Serious: Yes (Other)
  Sender: FDA-Public Use
  Company Number: JP-BEH-2019105500

PATIENT
  Age: 68 Year
  Sex: Male
  Weight: 56 kg

DRUGS (28)
  1. BERIPLEX P/N [Suspect]
     Active Substance: COAGULATION FACTOR IX HUMAN\COAGULATION FACTOR VII HUMAN\COAGULATION FACTOR X HUMAN\PROTEIN C\PROTEIN S HUMAN\PROTHROMBIN
     Indication: HAEMORRHAGE
     Dosage: 1400 INTERNATIONAL UNIT
     Route: 042
     Dates: start: 20180405
  2. BERIPLEX P/N [Suspect]
     Active Substance: COAGULATION FACTOR IX HUMAN\COAGULATION FACTOR VII HUMAN\COAGULATION FACTOR X HUMAN\PROTEIN C\PROTEIN S HUMAN\PROTHROMBIN
     Indication: SURGERY
  3. SPIRONOLACTONE. [Concomitant]
     Active Substance: SPIRONOLACTONE
     Route: 048
  4. URSODESOXYCHOLIC ACID [Concomitant]
     Active Substance: URSODIOL
     Indication: LIVER DISORDER
     Dosage: UNK
     Route: 048
     Dates: start: 20180406
  5. NICARDIPINE HYDROCHLORIDE. [Concomitant]
     Active Substance: NICARDIPINE HYDROCHLORIDE
     Indication: BLOOD PRESSURE INCREASED
     Dosage: UNK
     Route: 065
     Dates: start: 20180405, end: 20180408
  6. BERIPLEX P/N [Suspect]
     Active Substance: COAGULATION FACTOR IX HUMAN\COAGULATION FACTOR VII HUMAN\COAGULATION FACTOR X HUMAN\PROTEIN C\PROTEIN S HUMAN\PROTHROMBIN
     Indication: SURGERY
  7. WARFARIN [Concomitant]
     Active Substance: WARFARIN
     Indication: ATRIAL FIBRILLATION
     Dosage: 4.5 MILLIGRAM
     Route: 048
     Dates: start: 2005, end: 20180405
  8. LIPOVAS [SIMVASTATIN] [Concomitant]
     Route: 048
  9. WARFARIN [Concomitant]
     Active Substance: WARFARIN
     Dosage: 3 UNK
     Route: 065
     Dates: start: 20180420, end: 20180426
  10. WARFARIN [Concomitant]
     Active Substance: WARFARIN
     Dosage: 3.5 UNK
     Route: 065
     Dates: start: 20180427
  11. ENALAPRIL [Concomitant]
     Active Substance: ENALAPRIL
     Route: 048
  12. WARFARIN [Concomitant]
     Active Substance: WARFARIN
     Dosage: 3.5 UNK
     Route: 065
     Dates: start: 20180511
  13. ADONA [CARBAZOCHROME SODIUM SULFONATE] [Concomitant]
     Active Substance: CARBAZOCHROME SODIUM SULFONATE
     Indication: HAEMOSTASIS
     Dosage: UNK
     Route: 065
     Dates: start: 20180405, end: 20180405
  14. PROPOFOL. [Concomitant]
     Active Substance: PROPOFOL
     Indication: SEDATION
     Dosage: UNK
     Route: 065
     Dates: start: 20180405, end: 20180406
  15. WARFARIN [Concomitant]
     Active Substance: WARFARIN
     Dosage: 1 UNK
     Route: 065
     Dates: start: 20180413, end: 20180419
  16. DIGOXIN. [Concomitant]
     Active Substance: DIGOXIN
     Route: 048
  17. FUROSEMIDE. [Concomitant]
     Active Substance: FUROSEMIDE
     Route: 048
  18. CEFAZOLIN [Concomitant]
     Active Substance: CEFAZOLIN
     Indication: INFECTION PROPHYLAXIS
     Dosage: UNK
     Route: 065
     Dates: start: 20180405, end: 20180406
  19. MANNITOL. [Concomitant]
     Active Substance: MANNITOL
     Indication: SURGERY
     Dosage: UNK
     Route: 065
     Dates: start: 20180405, end: 20180405
  20. TRANSAMIN [Concomitant]
     Active Substance: TRANEXAMIC ACID
     Indication: HAEMOSTASIS
     Dosage: UNK
     Route: 065
     Dates: start: 20180405, end: 20180405
  21. ESLAX [Concomitant]
     Active Substance: ROCURONIUM BROMIDE
     Indication: SURGERY
     Dosage: UNK
     Route: 065
     Dates: start: 20180405, end: 20180405
  22. BERIPLEX P/N [Suspect]
     Active Substance: COAGULATION FACTOR IX HUMAN\COAGULATION FACTOR VII HUMAN\COAGULATION FACTOR X HUMAN\PROTEIN C\PROTEIN S HUMAN\PROTHROMBIN
     Indication: HAEMORRHAGE
     Dosage: 1400 INTERNATIONAL UNIT
     Route: 042
     Dates: start: 20180405
  23. KAYTWO N [Concomitant]
     Active Substance: MENATETRENONE
     Indication: PROCOAGULANT THERAPY
     Dosage: 10 MILLIGRAM
     Route: 065
     Dates: start: 20180405, end: 20180405
  24. WARFARIN [Concomitant]
     Active Substance: WARFARIN
     Dosage: 4.5 UNK
     Route: 048
     Dates: start: 20180409, end: 20180412
  25. E KEPPRA [Concomitant]
     Active Substance: LEVETIRACETAM
     Indication: PROPHYLAXIS
     Route: 048
  26. FAMOTIDINE. [Concomitant]
     Active Substance: FAMOTIDINE
     Indication: PROPHYLAXIS
     Dosage: UNK
     Route: 065
     Dates: start: 20180405
  27. FENTANYL. [Concomitant]
     Active Substance: FENTANYL
     Indication: SURGERY
     Dosage: UNK
     Route: 065
     Dates: start: 20190405, end: 20190405
  28. GLYCEREB [Concomitant]
     Active Substance: FRUCTOSE\GLYCERIN
     Indication: BRAIN OEDEMA
     Dosage: UNK
     Route: 065
     Dates: start: 20180406, end: 20180408

REACTIONS (1)
  - Pneumonia aspiration [Recovered/Resolved]

NARRATIVE: CASE EVENT DATE: 20180406
